FAERS Safety Report 6143480-6 (Version None)
Quarter: 2009Q2

REPORT INFORMATION
  Report Type: 
  Country: None (occurrence: None)
  Receive Date: 20090403
  Receipt Date: 20090327
  Transmission Date: 20091009
  Serious: Yes (Other)
  Sender: FDA-Public Use
  Company Number: PHEH2009US01406

PATIENT
  Sex: Male
  Weight: 58.9 kg

DRUGS (4)
  1. FEMARA [Suspect]
     Indication: EPIPHYSES DELAYED FUSION
     Dosage: 2.5 MG, QD
     Route: 048
     Dates: start: 20070828, end: 20071201
  2. FEMARA [Suspect]
     Dosage: 2.5 MG, QD
     Route: 048
     Dates: end: 20090106
  3. HUMATROPE [Concomitant]
     Indication: GROWTH HORMONE DEFICIENCY
     Dosage: 3.6 MG, SQ 6 DAYS PER WEEK
     Route: 058
     Dates: start: 19990101
  4. PEN-VEE K [Concomitant]
     Dosage: 250 MG, BID
     Route: 048
     Dates: start: 19960101

REACTIONS (2)
  - HYPERTENSION [None]
  - VENTRICULAR HYPERTROPHY [None]
